FAERS Safety Report 20224019 (Version 2)
Quarter: 2023Q4

REPORT INFORMATION
  Report Type: Report from Study
  Country: US (occurrence: US)
  Receive Date: 20211223
  Receipt Date: 20231228
  Transmission Date: 20240109
  Serious: Yes (Hospitalization, Other)
  Sender: FDA-Public Use
  Company Number: US-TAKEDA-2021TUS081480

PATIENT
  Age: 72 Year
  Sex: Male

DRUGS (1)
  1. ANTIHEMOPHILIC FACTOR HUMAN [Suspect]
     Active Substance: ANTIHEMOPHILIC FACTOR HUMAN
     Indication: Product used for unknown indication
     Dosage: 1750 INTERNATIONAL UNIT, 2/WEEK
     Route: 050

REACTIONS (2)
  - Respiratory tract infection [Unknown]
  - Vascular device infection [Unknown]

NARRATIVE: CASE EVENT DATE: 20211130
